FAERS Safety Report 4705720-7 (Version None)
Quarter: 2005Q2

REPORT INFORMATION
  Report Type: 
  Country: None (occurrence: None)
  Receive Date: 20050629
  Receipt Date: 20050617
  Transmission Date: 20051028
  Serious: Yes (Congenital Anomaly)
  Sender: FDA-Public Use
  Company Number: 2005-BP-10624RO

PATIENT

DRUGS (4)
  1. LITHIUM CARBONATE [Suspect]
     Dosage: IN-UTERO EXPOSURE TO 900 MG/D X 8W, IU
     Route: 015
  2. FOLIC ACID [Concomitant]
  3. CALCIUM (CALCIUM) [Concomitant]
  4. IRON (IRON) [Concomitant]

REACTIONS (5)
  - ANENCEPHALY [None]
  - DRUG EXPOSURE DURING PREGNANCY [None]
  - FOETAL DISORDER [None]
  - SPINE MALFORMATION [None]
  - UNINTENDED PREGNANCY [None]
